FAERS Safety Report 19882039 (Version 1)
Quarter: 2021Q3

REPORT INFORMATION
  Report Type: Spontaneous
  Country: DE (occurrence: DE)
  Receive Date: 20210924
  Receipt Date: 20210924
  Transmission Date: 20211014
  Serious: Yes (Other)
  Sender: FDA-Public Use
  Company Number: DE-WOODWARD-2021-DE-000211

PATIENT
  Age: 83 Year
  Sex: Male

DRUGS (1)
  1. DUTASTERIDE?TAMSULOSIN HCL (NON?SPECIFIC) [Suspect]
     Active Substance: DUTASTERIDE\TAMSULOSIN HYDROCHLORIDE
     Indication: PRODUCT USED FOR UNKNOWN INDICATION
     Dosage: 0.5/0.4 MG
     Route: 065

REACTIONS (3)
  - Tongue neoplasm malignant stage unspecified [Unknown]
  - Dysphagia [Unknown]
  - Incorrect product dosage form administered [Unknown]
